FAERS Safety Report 9550642 (Version 3)
Quarter: 2015Q1

REPORT INFORMATION
  Report Type: Report from Study
  Country: US (occurrence: US)
  Receive Date: 20130924
  Receipt Date: 20150202
  Transmission Date: 20150721
  Serious: Yes (Hospitalization, Other)
  Sender: FDA-Public Use
  Company Number: US-SANOFI-AVENTIS-2013SA042785

PATIENT
  Age: 49 Year
  Sex: Female

DRUGS (5)
  1. AUBAGIO [Suspect]
     Active Substance: TERIFLUNOMIDE
     Indication: MULTIPLE SCLEROSIS
     Route: 048
  2. AUBAGIO [Suspect]
     Active Substance: TERIFLUNOMIDE
     Indication: MULTIPLE SCLEROSIS
     Route: 065
     Dates: start: 20130318, end: 20130612
  3. AUBAGIO [Suspect]
     Active Substance: TERIFLUNOMIDE
     Indication: MULTIPLE SCLEROSIS
     Route: 048
     Dates: start: 20130820, end: 20140710
  4. CELEBREX [Concomitant]
     Active Substance: CELECOXIB
     Indication: RHEUMATOID ARTHRITIS
  5. AUBAGIO [Suspect]
     Active Substance: TERIFLUNOMIDE
     Indication: MULTIPLE SCLEROSIS
     Route: 048
     Dates: start: 20130621, end: 20130819

REACTIONS (16)
  - Hypophagia [Unknown]
  - Diarrhoea [Recovering/Resolving]
  - Blood potassium decreased [Unknown]
  - Oxygen saturation abnormal [Unknown]
  - Memory impairment [Unknown]
  - Vomiting [Unknown]
  - Paraesthesia [Not Recovered/Not Resolved]
  - Urinary tract infection [Recovered/Resolved]
  - Dizziness [Unknown]
  - Hypoaesthesia [Not Recovered/Not Resolved]
  - Drug dose omission [Unknown]
  - Micturition urgency [Not Recovered/Not Resolved]
  - Loss of consciousness [Unknown]
  - Blood pressure abnormal [Unknown]
  - Paraesthesia [Unknown]
  - Speech disorder [Unknown]

NARRATIVE: CASE EVENT DATE: 2013
